FAERS Safety Report 9852478 (Version 1)
Quarter: 2014Q1

REPORT INFORMATION
  Report Type: Spontaneous
  Country: US (occurrence: None)
  Receive Date: 20140128
  Receipt Date: 20140128
  Transmission Date: 20141002
  Serious: Yes (Disabling)
  Sender: FDA-Public Use
  Company Number: None

PATIENT
  Age: 48 Year
  Sex: Male
  Weight: 88.45 kg

DRUGS (1)
  1. CIPROFLOXACIN [Suspect]
     Indication: INFECTION PROPHYLAXIS
     Route: 048
     Dates: start: 20140122, end: 20140126

REACTIONS (8)
  - Tinnitus [None]
  - Abdominal distension [None]
  - Dysarthria [None]
  - Aggression [None]
  - Mood altered [None]
  - Arthralgia [None]
  - Fatigue [None]
  - Memory impairment [None]
